FAERS Safety Report 25520496 (Version 1)
Quarter: 2025Q3

REPORT INFORMATION
  Report Type: Spontaneous
  Country: US (occurrence: US)
  Receive Date: 20250704
  Receipt Date: 20250704
  Transmission Date: 20251021
  Serious: No
  Sender: MERCK SHARP & DOHME LLC
  Company Number: US-009507513-2304133

PATIENT
  Sex: Female

DRUGS (4)
  1. DORZOLAMIDE [Suspect]
     Active Substance: DORZOLAMIDE
     Indication: Angle closure glaucoma
  2. TIMOLOL [Concomitant]
     Active Substance: TIMOLOL
  3. BRIMONIDINE [Concomitant]
     Active Substance: BRIMONIDINE TARTRATE
  4. ACETAZOLAMIDE [Concomitant]
     Active Substance: ACETAZOLAMIDE
     Route: 048

REACTIONS (1)
  - Product use in unapproved indication [Unknown]
